FAERS Safety Report 5308386-0 (Version None)
Quarter: 2007Q2

REPORT INFORMATION
  Report Type: 
  Country: None (occurrence: None)
  Receive Date: 20070423
  Receipt Date: 20070410
  Transmission Date: 20071010
  Serious: Yes (Hospitalization)
  Sender: FDA-Public Use
  Company Number: 163-21880-07040629

PATIENT
  Age: 72 Year
  Sex: Male

DRUGS (1)
  1. REVLIMID [Suspect]
     Indication: MYELODYSPLASTIC SYNDROME
     Dosage: 10 MG, DAILY, ORAL
     Route: 048
     Dates: start: 20060723, end: 20070228

REACTIONS (14)
  - BODY HEIGHT DECREASED [None]
  - BRONCHOPULMONARY ASPERGILLOSIS [None]
  - EMPHYSEMA [None]
  - HAEMANGIOMA OF LIVER [None]
  - HYPERGLYCAEMIA [None]
  - HYPOGLYCAEMIA [None]
  - INTERSTITIAL LUNG DISEASE [None]
  - LUNG NEOPLASM [None]
  - LYMPHADENOPATHY [None]
  - NEUTROPENIA [None]
  - PLEURAL EFFUSION [None]
  - RENAL CYST [None]
  - SPINAL COMPRESSION FRACTURE [None]
  - SYNCOPE [None]
